FAERS Safety Report 11631551 (Version 7)
Quarter: 2017Q1

REPORT INFORMATION
  Report Type: Report from Study
  Country: CA (occurrence: CA)
  Receive Date: 20151015
  Receipt Date: 20170317
  Transmission Date: 20170428
  Serious: Yes (Other)
  Sender: FDA-Public Use
  Company Number: CA-ROCHE-1635698

PATIENT
  Age: 73 Year
  Sex: Male

DRUGS (17)
  1. ESBRIET [Suspect]
     Active Substance: PIRFENIDONE
     Route: 048
     Dates: start: 20150923
  2. SYMBICORT [Concomitant]
     Active Substance: BUDESONIDE\FORMOTEROL FUMARATE DIHYDRATE
  3. ELTROXIN [Concomitant]
     Active Substance: LEVOTHYROXINE
  4. PANTOLOC [Concomitant]
     Active Substance: PANTOPRAZOLE SODIUM
  5. LACTULOSE. [Concomitant]
     Active Substance: LACTULOSE
  6. DIAMICRON [Concomitant]
     Active Substance: GLICLAZIDE
  7. ESBRIET [Suspect]
     Active Substance: PIRFENIDONE
     Route: 048
     Dates: start: 20150916
  8. OXYGEN. [Concomitant]
     Active Substance: OXYGEN
  9. ESBRIET [Suspect]
     Active Substance: PIRFENIDONE
     Indication: IDIOPATHIC PULMONARY FIBROSIS
     Route: 048
     Dates: start: 20150909
  10. VENTOLIN [Concomitant]
     Active Substance: ALBUTEROL SULFATE
  11. SPIRIVA [Concomitant]
     Active Substance: TIOTROPIUM BROMIDE MONOHYDRATE
  12. ALLOPURINOL. [Concomitant]
     Active Substance: ALLOPURINOL
  13. ATENOLOL. [Concomitant]
     Active Substance: ATENOLOL
  14. COLCHICINE. [Concomitant]
     Active Substance: COLCHICINE
  15. OXYCODONE [Concomitant]
     Active Substance: OXYCODONE
  16. FUROSEMIDE. [Concomitant]
     Active Substance: FUROSEMIDE
  17. TRAVATAN [Concomitant]
     Active Substance: TRAVOPROST

REACTIONS (14)
  - Fatigue [Not Recovered/Not Resolved]
  - Pruritus [Not Recovered/Not Resolved]
  - Lower respiratory tract infection [Recovered/Resolved]
  - Anxiety [Not Recovered/Not Resolved]
  - Abdominal discomfort [Recovered/Resolved]
  - Abdominal abscess [Not Recovered/Not Resolved]
  - Dizziness [Unknown]
  - Decreased appetite [Not Recovered/Not Resolved]
  - Sinus congestion [Not Recovered/Not Resolved]
  - Depressed mood [Not Recovered/Not Resolved]
  - Stress [Not Recovered/Not Resolved]
  - Cardiac disorder [Unknown]
  - Abdominal discomfort [Unknown]
  - Crying [Not Recovered/Not Resolved]

NARRATIVE: CASE EVENT DATE: 201601
